FAERS Safety Report 26116821 (Version 1)
Quarter: 2025Q4

REPORT INFORMATION
  Report Type: Spontaneous
  Country: US (occurrence: US)
  Receive Date: 20251203
  Receipt Date: 20251203
  Transmission Date: 20260119
  Serious: Yes (Other)
  Sender: MYLAN
  Company Number: US-MYLANLABS-2025M1103277

PATIENT
  Age: 39 Year
  Sex: Female

DRUGS (4)
  1. CLOZAPINE [Interacting]
     Active Substance: CLOZAPINE
     Indication: Schizoaffective disorder
     Dosage: 175 MILLIGRAM, QD
  2. CLOZAPINE [Interacting]
     Active Substance: CLOZAPINE
     Dosage: INCREASED DOSE UPTO 200 MG/DAY)
  3. OSELTAMIVIR [Interacting]
     Active Substance: OSELTAMIVIR
     Indication: H1N1 influenza
     Dosage: UNK; FIVE DAY COURSE
  4. OLANZAPINE [Concomitant]
     Active Substance: OLANZAPINE
     Indication: Schizoaffective disorder
     Dosage: UNK

REACTIONS (2)
  - Neutropenia [Recovered/Resolved]
  - Drug interaction [Recovered/Resolved]
